FAERS Safety Report 6217107-9 (Version None)
Quarter: 2009Q2

REPORT INFORMATION
  Report Type: 
  Country: None (occurrence: None)
  Receive Date: 20090606
  Receipt Date: 20090526
  Transmission Date: 20091009
  Serious: Yes (Death, Hospitalization)
  Sender: FDA-Public Use
  Company Number: DE-PFIZER INC-2006029299

PATIENT
  Sex: Male
  Weight: 80 kg

DRUGS (7)
  1. SUNITINIB MALATE [Suspect]
     Indication: METASTATIC RENAL CELL CARCINOMA
     Dosage: 50 MG, 1X/DAY
     Route: 048
     Dates: start: 20051231, end: 20060127
  2. TORSEMIDE [Concomitant]
     Route: 048
     Dates: start: 20060123, end: 20060207
  3. TAVANIC [Concomitant]
     Route: 048
     Dates: start: 20060209, end: 20060222
  4. IBUPROFEN [Concomitant]
     Route: 048
     Dates: start: 20060209, end: 20060222
  5. PANTOZOL [Concomitant]
     Route: 048
     Dates: start: 20060207, end: 20060222
  6. TRAMADOL HCL [Concomitant]
     Route: 048
     Dates: start: 20051021, end: 20060222
  7. TRAMADOL HCL [Concomitant]
     Dates: end: 20060222

REACTIONS (4)
  - DISEASE PROGRESSION [None]
  - GENERAL PHYSICAL HEALTH DETERIORATION [None]
  - METASTATIC RENAL CELL CARCINOMA [None]
  - VOMITING [None]
